FAERS Safety Report 8166725-X (Version None)
Quarter: 2012Q1

REPORT INFORMATION
  Report Type: 
  Country: None (occurrence: None)
  Receive Date: 20120227
  Receipt Date: 20120213
  Transmission Date: 20120608
  Serious: Yes (Death, Other)
  Sender: FDA-Public Use
  Company Number: PL-CELGENEUS-129-50794-12021438

PATIENT
  Sex: Male

DRUGS (1)
  1. VIDAZA [Suspect]
     Route: 065
     Dates: end: 20111101

REACTIONS (8)
  - RESPIRATORY FAILURE [None]
  - ANAEMIA [None]
  - PNEUMONIA [None]
  - HEPATOMEGALY [None]
  - SPLENOMEGALY [None]
  - LEUKOPENIA [None]
  - INFECTION [None]
  - THROMBOCYTOPENIA [None]
